FAERS Safety Report 20061325 (Version 1)
Quarter: 2021Q4

REPORT INFORMATION
  Report Type: Spontaneous
  Country: CO (occurrence: CO)
  Receive Date: 20211112
  Receipt Date: 20211112
  Transmission Date: 20220303
  Serious: Yes (Death)
  Sender: FDA-Public Use
  Company Number: CO-BIOGEN-2021BI01065477

PATIENT
  Age: 7 Year
  Sex: Male
  Weight: 14.3 kg

DRUGS (2)
  1. SPINRAZA [Suspect]
     Active Substance: NUSINERSEN
     Indication: Spinal muscular atrophy
     Route: 037
  2. SPINRAZA [Suspect]
     Active Substance: NUSINERSEN
     Dosage: 1 INTRATHECAL APPLICATION OF 12 MG OF SPINRAZA (NUSINERSEN SODIUM) EVERY 4 MONTHS
     Route: 037
     Dates: start: 20191220, end: 20211015

REACTIONS (1)
  - Respiratory arrest [Fatal]

NARRATIVE: CASE EVENT DATE: 20211101
